FAERS Safety Report 4826191-6 (Version None)
Quarter: 2005Q4

REPORT INFORMATION
  Report Type: 
  Country: None (occurrence: None)
  Receive Date: 20051014
  Receipt Date: 20050714
  Transmission Date: 20060501
  Serious: No
  Sender: FDA-Public Use
  Company Number: 2005SP001935

PATIENT
  Age: 56 Year
  Sex: Female
  Weight: 52.6173 kg

DRUGS (7)
  1. LUNESTA [Suspect]
     Indication: INSOMNIA
     Dosage: 1 MG;HS;ORAL
     Route: 048
     Dates: start: 20050101, end: 20050101
  2. AMBIEN [Concomitant]
  3. YASMIN [Concomitant]
  4. CALCIFEROL [Concomitant]
  5. NEXIUM [Concomitant]
  6. MOBIC [Concomitant]
  7. VALIUM [Concomitant]

REACTIONS (1)
  - PARADOXICAL DRUG REACTION [None]
